FAERS Safety Report 14601030 (Version 3)
Quarter: 2018Q3

REPORT INFORMATION
  Report Type: Report from Study
  Country: AU (occurrence: AU)
  Receive Date: 20180305
  Receipt Date: 20180911
  Transmission Date: 20181010
  Serious: Yes (Other)
  Sender: FDA-Public Use
  Company Number: AU-GILEAD-2017-0300182

PATIENT
  Age: 60 Year
  Sex: Male
  Weight: 171 kg

DRUGS (4)
  1. TENOFOVIR DISOPROXIL FUMARATE. [Suspect]
     Active Substance: TENOFOVIR DISOPROXIL FUMARATE
     Indication: HIV INFECTION
     Dosage: UNK
     Route: 065
  2. ZOLEDRONIC ACID [Suspect]
     Active Substance: ZOLEDRONIC ACID
     Indication: BONE DENSITY INCREASED
     Dosage: 5 MG, EVERY 12 MONTHS
     Route: 042
  3. CALCIUM [Concomitant]
     Active Substance: CALCIUM
  4. VITAMIN D                          /00107901/ [Concomitant]
     Active Substance: ERGOCALCIFEROL

REACTIONS (1)
  - Hand fracture [Unknown]

NARRATIVE: CASE EVENT DATE: 20150803
